FAERS Safety Report 4843935-8 (Version None)
Quarter: 2005Q4

REPORT INFORMATION
  Report Type: 
  Country: None (occurrence: None)
  Receive Date: 20051202
  Receipt Date: 20050707
  Transmission Date: 20060501
  Serious: No
  Sender: FDA-Public Use
  Company Number: 00205002019

PATIENT
  Age: 59 Year
  Sex: Male
  Weight: 95.5 kg

DRUGS (8)
  1. AUGMENTIN [Suspect]
     Indication: INFECTION
     Route: 048
     Dates: start: 20050201
  2. ANDROGEL [Suspect]
     Dosage: 10G PER DAY
     Route: 062
     Dates: start: 20040401
  3. ATENOLOL [Concomitant]
     Route: 065
     Dates: start: 19830101
  4. VASOTEC [Concomitant]
     Route: 065
     Dates: start: 19920101
  5. LIPITOR [Concomitant]
     Route: 065
  6. PROTONIX [Concomitant]
  7. SPIRONOLACTONE [Concomitant]
     Dates: start: 20020101
  8. ASPIRIN [Concomitant]

REACTIONS (3)
  - APPLICATION SITE REACTION [None]
  - PARAESTHESIA [None]
  - RASH [None]
